FAERS Safety Report 15601375 (Version 1)
Quarter: 2018Q4

REPORT INFORMATION
  Report Type: Spontaneous
  Country: NO (occurrence: NO)
  Receive Date: 20181109
  Receipt Date: 20181109
  Transmission Date: 20190205
  Serious: Yes (Death, Hospitalization)
  Sender: FDA-Public Use
  Company Number: NO-MYLANLABS-2018M1082870

PATIENT
  Age: 72 Year
  Sex: Male

DRUGS (3)
  1. XOFIGO [Suspect]
     Active Substance: RADIUM RA-223 DICHLORIDE
     Indication: PROSTATE CANCER METASTATIC
     Dosage: EVERY FOURTH WEEK; SCHEDULE OF 6 CYCLES
     Route: 065
     Dates: start: 201503
  2. ZOLEDRONIC ACID [Suspect]
     Active Substance: ZOLEDRONIC ACID
     Indication: PROSTATE CANCER METASTATIC
     Dosage: EVERY FOURTH WEEK; FREQUENCY LOWERED TO EVERY THREE MONTHS
     Route: 065
     Dates: start: 201103
  3. ZOLEDRONIC ACID [Suspect]
     Active Substance: ZOLEDRONIC ACID
     Dosage: EVERY THREE MONTHS
     Route: 065
     Dates: start: 2014

REACTIONS (4)
  - Osteonecrosis of jaw [Recovering/Resolving]
  - Fistula [Recovering/Resolving]
  - Pathological fracture [Recovering/Resolving]
  - Bone disorder [Recovering/Resolving]
